FAERS Safety Report 23545939 (Version 1)
Quarter: 2024Q1

REPORT INFORMATION
  Report Type: Report from Study
  Country: IT (occurrence: IT)
  Receive Date: 20240220
  Receipt Date: 20240220
  Transmission Date: 20240410
  Serious: Yes (Other)
  Sender: FDA-Public Use
  Company Number: IT-VER-202400001

PATIENT
  Age: 85 Year
  Sex: Male
  Weight: 96 kg

DRUGS (2)
  1. ABIRATERONE [Suspect]
     Active Substance: ABIRATERONE
     Indication: Product used for unknown indication
     Dosage: 1000 MG/DAY (1000 MG,1 D)
     Route: 048
     Dates: start: 20230802
  2. TRIPTORELIN PAMOATE [Suspect]
     Active Substance: TRIPTORELIN PAMOATE
     Indication: Product used for unknown indication
     Dosage: 11.25 MG EVERY 3 MONTHS (11.25 MG,3 M)
     Route: 030
     Dates: start: 202106

REACTIONS (1)
  - Atrial fibrillation [Recovered/Resolved]

NARRATIVE: CASE EVENT DATE: 20240118
